FAERS Safety Report 5367930-8 (Version None)
Quarter: 2007Q2

REPORT INFORMATION
  Report Type: 
  Country: None (occurrence: None)
  Receive Date: 20070622
  Receipt Date: 20070618
  Transmission Date: 20071010
  Serious: Yes (Other)
  Sender: FDA-Public Use
  Company Number: IE-ELI_LILLY_AND_COMPANY-IE200706004043

PATIENT
  Sex: Female

DRUGS (3)
  1. CYMBALTA [Suspect]
     Dosage: 120 MG, UNK
  2. EFFEXOR [Concomitant]
  3. LAMICTAL [Concomitant]

REACTIONS (2)
  - RETINAL PIGMENTATION [None]
  - VISUAL DISTURBANCE [None]
